FAERS Safety Report 10495216 (Version 1)
Quarter: 2014Q4

REPORT INFORMATION
  Report Type: Spontaneous
  Country: JP (occurrence: JP)
  Receive Date: 20141003
  Receipt Date: 20141003
  Transmission Date: 20150528
  Serious: Yes (Other)
  Sender: FDA-Public Use
  Company Number: PHHY2014JP126025

PATIENT
  Age: 51 Year
  Sex: Female
  Weight: 45 kg

DRUGS (2)
  1. PREDNISONE. [Suspect]
     Active Substance: PREDNISONE
     Indication: MIXED CONNECTIVE TISSUE DISEASE
     Dosage: 6 MG, PER DAY
  2. AZATHIOPRINE. [Suspect]
     Active Substance: AZATHIOPRINE
     Indication: MIXED CONNECTIVE TISSUE DISEASE
     Dosage: 50 MG, PER DAY

REACTIONS (4)
  - Oesophageal disorder [Unknown]
  - White blood cell count decreased [Unknown]
  - C-reactive protein increased [Unknown]
  - Neutropenia [Unknown]
